FAERS Safety Report 8954164 (Version 3)
Quarter: 2013Q2

REPORT INFORMATION
  Report Type: Report from Study
  Country: JP (occurrence: JP)
  Receive Date: 20121207
  Receipt Date: 20130618
  Transmission Date: 20140414
  Serious: Yes (Other)
  Sender: FDA-Public Use
  Company Number: JP-009507513-1212JPN002173

PATIENT
  Age: 60 Year
  Sex: Male
  Weight: 64 kg

DRUGS (10)
  1. PEGINTRON [Suspect]
     Indication: CHRONIC HEPATITIS C
     Dosage: 1.5 MICROGRAM PER KILOGRAM, QW
     Route: 058
     Dates: start: 20120821, end: 20130128
  2. REBETOL [Suspect]
     Indication: CHRONIC HEPATITIS C
     Dosage: 800 MG, QD
     Route: 048
     Dates: start: 20120821, end: 20130204
  3. TELAVIC [Suspect]
     Indication: CHRONIC HEPATITIS C
     Dosage: 2250 MG, QD
     Route: 048
     Dates: start: 20120821, end: 20120918
  4. TELAVIC [Suspect]
     Dosage: 1500 MG, QD
     Route: 048
     Dates: start: 20120918, end: 20121111
  5. CALONAL [Concomitant]
     Indication: PYREXIA
     Dosage: 400 MG/ DAY, AS NEEDED, FORMULATION: POR
     Route: 048
     Dates: start: 20120821, end: 20130204
  6. CALONAL [Concomitant]
     Indication: PROPHYLAXIS
  7. RIKKUNSHI-TO [Concomitant]
     Indication: DECREASED APPETITE
     Dosage: 7.5 G, QD
     Route: 048
     Dates: start: 20120825, end: 20130204
  8. GASMOTIN [Concomitant]
     Indication: DECREASED APPETITE
     Dosage: 15 MG, QD, FORMULATION: POR
     Route: 048
     Dates: start: 20120827, end: 20121119
  9. ALLEGRA [Concomitant]
     Indication: RASH
     Dosage: 120 MG, QD
     Route: 048
     Dates: start: 20121015, end: 20130204
  10. RESTAMIN [Concomitant]
     Indication: RASH
     Dosage: Q.S/DAY, DAILY DOSE UNKNOWN
     Route: 061
     Dates: start: 20121015, end: 20130204

REACTIONS (1)
  - Anaemia [Recovering/Resolving]
